FAERS Safety Report 4279370-3 (Version None)
Quarter: 2004Q1

REPORT INFORMATION
  Report Type: 
  Country: None (occurrence: None)
  Receive Date: 20040127
  Receipt Date: 20031217
  Transmission Date: 20041129
  Serious: Yes (Life-Threatening, Hospitalization, Disabling, Other)
  Sender: FDA-Public Use
  Company Number: WAES 0312USA02055

PATIENT
  Age: 56 Year
  Sex: Female
  Weight: 63 kg

DRUGS (5)
  1. ASTELIN [Concomitant]
     Indication: RHINITIS
     Dates: start: 20031009, end: 20031024
  2. FLONASE [Concomitant]
     Indication: SINUSITIS
     Dates: start: 20030909, end: 20031024
  3. ADVAIR DISKUS 100/50 [Concomitant]
     Dates: start: 20030909, end: 20031001
  4. SINGULAIR [Suspect]
     Indication: DRUG HYPERSENSITIVITY
     Route: 048
     Dates: start: 20030909, end: 20031216
  5. SINGULAIR [Suspect]
     Indication: SINUSITIS
     Route: 048
     Dates: start: 20030909, end: 20031216

REACTIONS (7)
  - ANXIETY [None]
  - CHEST PAIN [None]
  - DIZZINESS [None]
  - DYSPNOEA [None]
  - EAR PAIN [None]
  - TREMOR [None]
  - TROPONIN INCREASED [None]
